FAERS Safety Report 13017943 (Version 6)
Quarter: 2017Q1

REPORT INFORMATION
  Report Type: Report from Study
  Country: CZ (occurrence: CZ)
  Receive Date: 20161212
  Receipt Date: 20170322
  Transmission Date: 20170428
  Serious: Yes (Hospitalization)
  Sender: FDA-Public Use
  Company Number: CZ-JNJFOC-20161208715

PATIENT
  Age: 72 Year
  Sex: Female

DRUGS (6)
  1. IBRUTINIB [Suspect]
     Active Substance: IBRUTINIB
     Indication: PLASMA CELL MYELOMA
     Route: 048
     Dates: start: 20161024, end: 20161202
  2. BORTEZOMIB [Suspect]
     Active Substance: BORTEZOMIB
     Indication: PLASMA CELL MYELOMA
     Route: 058
     Dates: start: 20161219
  3. BORTEZOMIB [Suspect]
     Active Substance: BORTEZOMIB
     Indication: PLASMA CELL MYELOMA
     Route: 058
     Dates: start: 20161024, end: 20161202
  4. IBRUTINIB [Suspect]
     Active Substance: IBRUTINIB
     Indication: PLASMA CELL MYELOMA
     Route: 048
     Dates: start: 20161219
  5. DEXAMETHASONE. [Suspect]
     Active Substance: DEXAMETHASONE
     Indication: PLASMA CELL MYELOMA
     Route: 048
     Dates: start: 20161219
  6. DEXAMETHASONE. [Suspect]
     Active Substance: DEXAMETHASONE
     Indication: PLASMA CELL MYELOMA
     Route: 048
     Dates: start: 20161024, end: 20161202

REACTIONS (1)
  - Hyponatraemia [Recovered/Resolved]

NARRATIVE: CASE EVENT DATE: 20161202
